FAERS Safety Report 20693858 (Version 3)
Quarter: 2022Q3

REPORT INFORMATION
  Report Type: Spontaneous
  Country: DE (occurrence: DE)
  Receive Date: 20220411
  Receipt Date: 20220813
  Transmission Date: 20221026
  Serious: No
  Sender: FDA-Public Use
  Company Number: None

PATIENT
  Age: 54 Year
  Sex: Female

DRUGS (5)
  1. GEMCITABINE [Suspect]
     Active Substance: GEMCITABINE
     Indication: Non-small cell lung cancer
     Dates: start: 20211117, end: 20220111
  2. IPILIMUMAB [Suspect]
     Active Substance: IPILIMUMAB
     Indication: Non-small cell lung cancer
  3. NIVOLUMAB [Suspect]
     Active Substance: NIVOLUMAB
     Indication: Non-small cell lung cancer
     Dates: start: 20211117, end: 20220111
  4. PEMETREXED DISODIUM HEMIPENTAHYDRATE [Suspect]
     Active Substance: PEMETREXED DISODIUM HEMIPENTAHYDRATE
     Indication: Non-small cell lung cancer
     Dates: start: 20220113, end: 20220214
  5. CARBOPLATIN [Suspect]
     Active Substance: CARBOPLATIN
     Indication: Non-small cell lung cancer
     Dates: start: 20211117, end: 20220111

REACTIONS (1)
  - No adverse event [Unknown]
